FAERS Safety Report 9839824 (Version 1)
Quarter: 2014Q1

REPORT INFORMATION
  Report Type: Other
  Country: CZ (occurrence: CZ)
  Receive Date: 20140124
  Receipt Date: 20140124
  Transmission Date: 20141002
  Serious: Yes (Other)
  Sender: FDA-Public Use
  Company Number: CZ-BRISTOL-MYERS SQUIBB COMPANY-19946433

PATIENT
  Age: 66 Year
  Sex: Male

DRUGS (4)
  1. CETUXIMAB [Suspect]
     Indication: COLORECTAL CANCER
     Dates: start: 201201
  2. CETUXIMAB [Suspect]
     Indication: RENAL CANCER
     Dates: start: 201201
  3. IRINOTECAN [Suspect]
     Indication: COLORECTAL CANCER
     Dates: start: 201201
  4. IRINOTECAN [Suspect]
     Indication: RENAL CANCER
     Dates: start: 201201

REACTIONS (2)
  - Bone marrow failure [Unknown]
  - Rash [Recovered/Resolved]
